FAERS Safety Report 19555376 (Version 1)
Quarter: 2021Q3

REPORT INFORMATION
  Report Type: Spontaneous
  Country: US (occurrence: US)
  Receive Date: 20210714
  Receipt Date: 20210714
  Transmission Date: 20211014
  Serious: No
  Sender: FDA-Public Use
  Company Number: US-GLENMARK PHARMACEUTICALS-2020GMK049240

PATIENT

DRUGS (1)
  1. ONDANSETRON TABLETS USP [Suspect]
     Active Substance: ONDANSETRON
     Indication: NAUSEA
     Dosage: 4 MILLIGRAM, TID
     Route: 048
     Dates: start: 20200811, end: 202008

REACTIONS (3)
  - Headache [Recovered/Resolved]
  - Drug effective for unapproved indication [Unknown]
  - Fatigue [Unknown]

NARRATIVE: CASE EVENT DATE: 20200811
